FAERS Safety Report 12542087 (Version 2)
Quarter: 2016Q3

REPORT INFORMATION
  Report Type: Report from Study
  Country: US (occurrence: US)
  Receive Date: 20160708
  Receipt Date: 20160916
  Transmission Date: 20161109
  Serious: Yes (Life-Threatening, Hospitalization, Disabling)
  Sender: FDA-Public Use
  Company Number: US-EMD SERONO-E2B_80042303

PATIENT
  Age: 47 Year
  Sex: Female

DRUGS (2)
  1. REBIF [Suspect]
     Active Substance: INTERFERON BETA-1A
     Indication: MULTIPLE SCLEROSIS
     Route: 058
     Dates: start: 20160622
  2. REBIF [Suspect]
     Active Substance: INTERFERON BETA-1A
     Route: 058
     Dates: end: 201608

REACTIONS (4)
  - Cardiac arrest [Recovered/Resolved]
  - Coma [Recovered/Resolved]
  - Dysarthria [Unknown]
  - Asthenia [Unknown]

NARRATIVE: CASE EVENT DATE: 201606
